FAERS Safety Report 14660482 (Version 2)
Quarter: 2018Q2

REPORT INFORMATION
  Report Type: Report from Study
  Country: CA (occurrence: CA)
  Receive Date: 20180320
  Receipt Date: 20180626
  Transmission Date: 20180711
  Serious: Yes (Other)
  Sender: FDA-Public Use
  Company Number: CA-GLAXOSMITHKLINE-CA2017GSK072142

PATIENT
  Age: 60 Year
  Sex: Female

DRUGS (18)
  1. DICLOFENAC SODIUM. [Suspect]
     Active Substance: DICLOFENAC SODIUM
     Indication: PRODUCT USED FOR UNKNOWN INDICATION
     Dosage: UNK
     Route: 065
  2. DICLOFENAC SODIUM. [Suspect]
     Active Substance: DICLOFENAC SODIUM
     Dosage: UNK
  3. MELOXICAM. [Concomitant]
     Active Substance: MELOXICAM
     Dosage: UNK
     Route: 065
  4. COSENTYX [Suspect]
     Active Substance: SECUKINUMAB
     Indication: PSORIATIC ARTHROPATHY
     Dosage: 150 MG, QW
     Route: 058
     Dates: start: 20170509
  5. COSENTYX [Suspect]
     Active Substance: SECUKINUMAB
     Dosage: 150 MG, QMO
     Route: 058
     Dates: start: 20170606
  6. CELEBREX [Concomitant]
     Active Substance: CELECOXIB
     Dosage: UNK
     Route: 065
  7. STELARA [Concomitant]
     Active Substance: USTEKINUMAB
     Route: 065
  8. COSENTYX [Suspect]
     Active Substance: SECUKINUMAB
     Dosage: 150 MG, WE
     Route: 058
     Dates: start: 20170530
  9. COSENTYX [Suspect]
     Active Substance: SECUKINUMAB
     Dosage: 150 MG, EVERY 6 WEEKS
     Route: 058
     Dates: start: 20180508
  10. COSENTYX [Suspect]
     Active Substance: SECUKINUMAB
     Dosage: 150 MG, (Q6 WEEKS)
     Route: 058
     Dates: start: 2017
  11. INDOMETHACIN. [Suspect]
     Active Substance: INDOMETHACIN
     Indication: PRODUCT USED FOR UNKNOWN INDICATION
     Dosage: UNK
     Route: 065
  12. METHOTREXATE. [Suspect]
     Active Substance: METHOTREXATE
     Indication: PRODUCT USED FOR UNKNOWN INDICATION
     Dosage: UNK
     Route: 065
  13. COSENTYX [Suspect]
     Active Substance: SECUKINUMAB
     Dosage: 150 MG, QW
     Route: 058
     Dates: start: 201705
  14. COSENTYX [Suspect]
     Active Substance: SECUKINUMAB
     Dosage: 150 MG, EVERY 6 WEEKS
     Route: 058
     Dates: start: 20170906
  15. MOBICOX [Concomitant]
     Active Substance: MELOXICAM
     Dosage: UNK
     Route: 065
  16. IBUPROFEN. [Concomitant]
     Active Substance: IBUPROFEN
     Dosage: UNK
     Route: 065
  17. COSENTYX [Suspect]
     Active Substance: SECUKINUMAB
     Indication: PSORIASIS
     Dosage: 150 MG, QW
     Route: 058
     Dates: start: 20170516
  18. ENBREL [Concomitant]
     Active Substance: ETANERCEPT
     Dosage: UNK
     Route: 065

REACTIONS (25)
  - Oropharyngeal pain [Unknown]
  - Arthralgia [Unknown]
  - Pain [Unknown]
  - Breast pain [Unknown]
  - Pain [Recovered/Resolved]
  - Fatigue [Recovering/Resolving]
  - Pruritus [Unknown]
  - Back pain [Unknown]
  - Axillary pain [Unknown]
  - Viral upper respiratory tract infection [Unknown]
  - Inappropriate schedule of drug administration [Unknown]
  - Irritable bowel syndrome [Unknown]
  - Inflammation [Unknown]
  - Sinus congestion [Unknown]
  - Abdominal pain upper [Unknown]
  - Vision blurred [Unknown]
  - Abdominal pain upper [Unknown]
  - Dyspnoea [Unknown]
  - Condition aggravated [Unknown]
  - Influenza [Unknown]
  - Mobility decreased [Unknown]
  - Chest pain [Recovered/Resolved]
  - Musculoskeletal chest pain [Unknown]
  - Pyrexia [Unknown]
  - Lymphoma [Unknown]

NARRATIVE: CASE EVENT DATE: 201705
